FAERS Safety Report 8068577-5 (Version None)
Quarter: 2012Q1

REPORT INFORMATION
  Report Type: 
  Country: None (occurrence: None)
  Receive Date: 20120124
  Receipt Date: 20111111
  Transmission Date: 20120608
  Serious: No
  Sender: FDA-Public Use
  Company Number: US-AMGEN-USASP2011059460

PATIENT
  Age: 81 Year
  Sex: Female

DRUGS (5)
  1. ATENOLOL [Concomitant]
     Dosage: UNK
  2. LISINOPRIL [Concomitant]
     Dosage: UNK
  3. ASPIRIN [Concomitant]
     Dosage: UNK
  4. PROLIA [Suspect]
     Indication: OSTEOPOROSIS POSTMENOPAUSAL
     Dosage: 60 MG, Q6MO
     Dates: start: 20110309
  5. CALCIUM W/VITAMIN D                /01204201/ [Concomitant]
     Dosage: 2 MG, UNK

REACTIONS (1)
  - RASH [None]
